FAERS Safety Report 9361938 (Version 3)
Quarter: 2013Q3

REPORT INFORMATION
  Report Type: Report from Study
  Country: US (occurrence: US)
  Receive Date: 20130621
  Receipt Date: 20130826
  Transmission Date: 20140515
  Serious: Yes (Other)
  Sender: FDA-Public Use
  Company Number: US-ABBOTT-13P-163-1105580-00

PATIENT
  Sex: Male
  Weight: 61.29 kg

DRUGS (11)
  1. HUMIRA [Suspect]
     Indication: COLITIS ULCERATIVE
     Dates: start: 20130204, end: 20130204
  2. HUMIRA [Suspect]
     Dates: start: 20130218, end: 20130218
  3. HUMIRA [Suspect]
     Dates: start: 20130304
  4. ATENOLOL [Concomitant]
     Indication: BLOOD PRESSURE
  5. OMEPRAZOLE [Concomitant]
     Indication: GASTRIC DISORDER
  6. PREDNISONE [Concomitant]
     Indication: COLITIS ULCERATIVE
     Dosage: ON 50MG FOR YEARS TAPER NOW AT 10 MG
  7. PREDNISONE [Concomitant]
     Dosage: TAPER TO 2.5 MG
     Route: 048
     Dates: start: 20130521
  8. PRAZOSIN [Concomitant]
     Indication: BLADDER DISORDER
  9. FINASTERIDE [Concomitant]
     Indication: BLADDER DISORDER
  10. CLARITIN [Concomitant]
     Indication: HYPERSENSITIVITY
  11. LACTAID [Concomitant]
     Indication: LACTOSE INTOLERANCE

REACTIONS (10)
  - Anal fistula [Recovering/Resolving]
  - Rectal abscess [Recovering/Resolving]
  - Proctalgia [Recovering/Resolving]
  - Rectal discharge [Recovering/Resolving]
  - Infection [Recovering/Resolving]
  - Local swelling [Not Recovered/Not Resolved]
  - Joint swelling [Not Recovered/Not Resolved]
  - Back pain [Unknown]
  - Abdominal distension [Unknown]
  - Myalgia [Unknown]
